FAERS Safety Report 7213455-4 (Version None)
Quarter: 2011Q1

REPORT INFORMATION
  Report Type: 
  Country: None (occurrence: None)
  Receive Date: 20110106
  Receipt Date: 20101227
  Transmission Date: 20110831
  Serious: Yes (Hospitalization, Other)
  Sender: FDA-Public Use
  Company Number: JP-JNJFOC-20101206004

PATIENT
  Sex: Male

DRUGS (11)
  1. RISPERIDONE [Concomitant]
     Route: 048
  2. CRAVIT [Suspect]
     Route: 048
  3. CRAVIT [Suspect]
     Route: 048
  4. DEPAS [Concomitant]
     Indication: SCHIZOPHRENIA
     Route: 048
  5. DORAL [Concomitant]
     Indication: SCHIZOPHRENIA
     Route: 048
  6. CRAVIT [Suspect]
     Indication: ULCER
     Route: 048
  7. CRAVIT [Suspect]
     Indication: GINGIVITIS
     Route: 048
  8. LOXONIN [Concomitant]
     Route: 048
  9. RISPERIDONE [Concomitant]
     Indication: SCHIZOPHRENIA
     Route: 048
  10. LULLAN [Concomitant]
     Indication: SCHIZOPHRENIA
     Route: 048
  11. TRIHEXYPHENIDYL HCL [Concomitant]
     Indication: SCHIZOPHRENIA
     Route: 048

REACTIONS (3)
  - PYREXIA [None]
  - DRUG ERUPTION [None]
  - HAEMARTHROSIS [None]
